FAERS Safety Report 7323210-2 (Version None)
Quarter: 2011Q1

REPORT INFORMATION
  Report Type: 
  Country: None (occurrence: None)
  Receive Date: 20110216
  Receipt Date: 20110202
  Transmission Date: 20110831
  Serious: Yes (Hospitalization)
  Sender: FDA-Public Use
  Company Number: UTC-005084

PATIENT
  Age: 48 Year
  Sex: Female
  Weight: 96.8 kg

DRUGS (3)
  1. TRACLEER [Concomitant]
  2. COUMADIN [Concomitant]
  3. REMODULIN [Suspect]
     Dosage: 66.24 UG/KG (0.046 UG/KG,1 IN 1 MIN),INTRAVENOUS
     Route: 042
     Dates: start: 20091117

REACTIONS (5)
  - INCORRECT DOSE ADMINISTERED [None]
  - DYSPNOEA [None]
  - OEDEMA [None]
  - DRUG DISPENSING ERROR [None]
  - MALAISE [None]
